FAERS Safety Report 26210343 (Version 1)
Quarter: 2025Q4

REPORT INFORMATION
  Report Type: Spontaneous
  Country: GB (occurrence: GB)
  Receive Date: 20251229
  Receipt Date: 20251229
  Transmission Date: 20260118
  Serious: Yes (Life-Threatening, Other)
  Sender: Karo Pharma
  Company Number: GB-Karo Pharma-2191553

PATIENT
  Age: 26 Year
  Sex: Female

DRUGS (4)
  1. LAMISIL [Suspect]
     Active Substance: TERBINAFINE HYDROCHLORIDE
     Indication: Onychomycosis
  2. ATOGEPANT [Suspect]
     Active Substance: ATOGEPANT
  3. CETIRIZINE [Concomitant]
     Active Substance: CETIRIZINE HYDROCHLORIDE
  4. SYMBICORT [Concomitant]
     Active Substance: BUDESONIDE\FORMOTEROL FUMARATE DIHYDRATE

REACTIONS (2)
  - Suicidal ideation [Not Recovered/Not Resolved]
  - Depression suicidal [Not Recovered/Not Resolved]
